FAERS Safety Report 18608153 (Version 1)
Quarter: 2020Q4

REPORT INFORMATION
  Report Type: Spontaneous
  Country: HU (occurrence: HU)
  Receive Date: 20201211
  Receipt Date: 20201211
  Transmission Date: 20210114
  Serious: Yes (Other)
  Sender: FDA-Public Use
  Company Number: HU-CELLTRION INC.-2020HU033520

PATIENT

DRUGS (10)
  1. METHOTREXATE SODIUM. [Suspect]
     Active Substance: METHOTREXATE SODIUM
     Dosage: 15 MG, QW
     Route: 065
     Dates: start: 2010
  2. METHOTREXATE SODIUM. [Suspect]
     Active Substance: METHOTREXATE SODIUM
     Dosage: 15 MG, QW
     Route: 065
     Dates: start: 2010
  3. ACECLOFENAC [Concomitant]
     Active Substance: ACECLOFENAC
     Dosage: UNK PRN (AS NEEDED)
     Route: 065
  4. INFLIXIMAB PFIZER (UNKNOWN) [Suspect]
     Active Substance: INFLIXIMAB
     Dosage: 500 MG
     Route: 042
     Dates: start: 2011, end: 2014
  5. PERINDOPRIL [Suspect]
     Active Substance: PERINDOPRIL
     Dosage: UNK
     Route: 065
  6. USTEKINUMAB [Concomitant]
     Active Substance: USTEKINUMAB
     Dosage: 45 MG
     Route: 065
     Dates: start: 2014
  7. SANDIMMUN [Suspect]
     Active Substance: CYCLOSPORINE
     Dosage: 200 MG, 1X/DAY
     Route: 065
  8. SANDIMMUN [Suspect]
     Active Substance: CYCLOSPORINE
     Dosage: 300 MG, QD
     Route: 065
     Dates: start: 2010
  9. ACITRETIN. [Suspect]
     Active Substance: ACITRETIN
     Dosage: UNK
     Route: 065
  10. INSULIN [Concomitant]
     Active Substance: INSULIN NOS
     Dosage: UNK
     Route: 065

REACTIONS (18)
  - Hypertensive crisis [Unknown]
  - Psoriasis [Unknown]
  - Cough [Unknown]
  - Type 2 diabetes mellitus [Unknown]
  - Myocardial ischaemia [Unknown]
  - Arthralgia [Recovered/Resolved]
  - Hypertriglyceridaemia [Unknown]
  - Hypertension [Unknown]
  - Cutaneous symptom [Unknown]
  - Hypercholesterolaemia [Unknown]
  - Therapeutic response shortened [Unknown]
  - Drug intolerance [Unknown]
  - Condition aggravated [Unknown]
  - Arthritis [Unknown]
  - Arthralgia [Recovered/Resolved]
  - Obesity [Unknown]
  - Back pain [Recovered/Resolved]
  - Arthropathy [Recovered/Resolved]

NARRATIVE: CASE EVENT DATE: 2010
